FAERS Safety Report 6509471-8 (Version None)
Quarter: 2009Q4

REPORT INFORMATION
  Report Type: 
  Country: None (occurrence: None)
  Receive Date: 20091217
  Receipt Date: 20091203
  Transmission Date: 20100525
  Serious: Yes (Other)
  Sender: FDA-Public Use
  Company Number: DSA_42168_2009

PATIENT
  Age: 38 Year
  Sex: Male

DRUGS (1)
  1. BUPROPION HYDROCHLORIDE [Suspect]
     Indication: DEPRESSION
     Dosage: 150 MG QD ORAL
     Route: 048
     Dates: start: 20091016, end: 20091114

REACTIONS (3)
  - AGGRESSION [None]
  - JEALOUS DELUSION [None]
  - SUICIDAL IDEATION [None]
